FAERS Safety Report 18658787 (Version 1)
Quarter: 2020Q4

REPORT INFORMATION
  Report Type: Report from Study
  Country: US (occurrence: US)
  Receive Date: 20201223
  Receipt Date: 20201223
  Transmission Date: 20210114
  Serious: Yes (Death, Hospitalization, Other)
  Sender: FDA-Public Use
  Company Number: US-PFIZER INC-2020437444

PATIENT
  Age: 77 Year
  Sex: Female

DRUGS (2)
  1. IBRANCE [Suspect]
     Active Substance: PALBOCICLIB
     Indication: BREAST CANCER FEMALE
     Dosage: 125 MG, DAILY FOR 21 DAYS ON AND 7 DAYS OFF
     Route: 048
     Dates: start: 20201027, end: 202011
  2. FEMARA [Concomitant]
     Active Substance: LETROZOLE
     Dosage: UNK, DAILY
     Route: 048

REACTIONS (9)
  - Haematochezia [Unknown]
  - Tremor [Unknown]
  - Death [Fatal]
  - Confusional state [Unknown]
  - Diverticulitis [Unknown]
  - Ammonia increased [Unknown]
  - Product dose omission issue [Unknown]
  - Rectal haemorrhage [Unknown]
  - Neoplasm progression [Unknown]

NARRATIVE: CASE EVENT DATE: 2020
